FAERS Safety Report 5458075-7 (Version None)
Quarter: 2007Q3

REPORT INFORMATION
  Report Type: 
  Country: None (occurrence: None)
  Receive Date: 20070917
  Receipt Date: 20070904
  Transmission Date: 20080115
  Serious: Yes (Hospitalization)
  Sender: FDA-Public Use
  Company Number: 2007AL002030

PATIENT
  Age: 71 Year
  Sex: Male

DRUGS (8)
  1. MELOXICAM [Suspect]
     Indication: GOUT
     Dosage: 7.5 MG; QD; PO
     Route: 048
     Dates: end: 20070501
  2. LISINOPRIL [Concomitant]
  3. LERCANIDIPINE [Concomitant]
  4. ALLOPURINOL [Concomitant]
  5. LANSOPRAZOLE [Concomitant]
  6. TIMOLOL MALEATE [Concomitant]
  7. CO-PHENOTROPE [Concomitant]
  8. MESALAZINE [Concomitant]

REACTIONS (7)
  - DEHYDRATION [None]
  - DIARRHOEA [None]
  - DIZZINESS [None]
  - LETHARGY [None]
  - METABOLIC ACIDOSIS [None]
  - RENAL FAILURE ACUTE [None]
  - RENAL IMPAIRMENT [None]
